FAERS Safety Report 6206086-6 (Version None)
Quarter: 2009Q2

REPORT INFORMATION
  Report Type: 
  Country: None (occurrence: None)
  Receive Date: 20090528
  Receipt Date: 20090525
  Transmission Date: 20091009
  Serious: Yes (Other)
  Sender: FDA-Public Use
  Company Number: AU-BRISTOL-MYERS SQUIBB COMPANY-14636906

PATIENT
  Age: 60 Year
  Sex: Male

DRUGS (2)
  1. HYDROXYUREA [Suspect]
     Dosage: CAPSULE
     Route: 048
     Dates: start: 20061201, end: 20070102
  2. ASPIRIN [Concomitant]
     Dosage: TABS
     Route: 048

REACTIONS (11)
  - ACUTE MYOCARDIAL INFARCTION [None]
  - ASTHENIA [None]
  - CHROMATURIA [None]
  - DEHYDRATION [None]
  - DIZZINESS [None]
  - HEPATIC FUNCTION ABNORMAL [None]
  - LETHARGY [None]
  - MALAISE [None]
  - PARAESTHESIA [None]
  - PLATELET COUNT DECREASED [None]
  - WHITE BLOOD CELL COUNT DECREASED [None]
